FAERS Safety Report 21569923 (Version 2)
Quarter: 2022Q4

REPORT INFORMATION
  Report Type: Spontaneous
  Country: JP (occurrence: JP)
  Receive Date: 20221109
  Receipt Date: 20221205
  Transmission Date: 20230113
  Serious: Yes (Hospitalization, Other)
  Sender: FDA-Public Use
  Company Number: JP-ONO-2022JP029857

PATIENT
  Age: 9 Decade
  Sex: Male

DRUGS (1)
  1. OPDIVO [Suspect]
     Active Substance: NIVOLUMAB
     Indication: Transitional cell carcinoma
     Dosage: 240 MG
     Route: 041
     Dates: start: 202210, end: 202210

REACTIONS (1)
  - Mechanical ileus [Recovered/Resolved]

NARRATIVE: CASE EVENT DATE: 20221010
